FAERS Safety Report 4935316-3 (Version None)
Quarter: 2006Q1

REPORT INFORMATION
  Report Type: 
  Country: None (occurrence: None)
  Receive Date: 20060307
  Receipt Date: 20060220
  Transmission Date: 20060701
  Serious: Yes (Hospitalization)
  Sender: FDA-Public Use
  Company Number: ITWYE408720FEB06

PATIENT
  Sex: Female

DRUGS (2)
  1. ENBREL [Suspect]
     Indication: RHEUMATOID ARTHRITIS
     Route: 058
     Dates: start: 20060102, end: 20060215
  2. SANDIMMUNE [Concomitant]
     Dosage: 150 MG
     Route: 048

REACTIONS (6)
  - ANAEMIA [None]
  - CHILLS [None]
  - LEUKOCYTOSIS [None]
  - PAIN [None]
  - PYREXIA [None]
  - SYNCOPE [None]
